FAERS Safety Report 5803656-1 (Version None)
Quarter: 2008Q3

REPORT INFORMATION
  Report Type: 
  Country: None (occurrence: None)
  Receive Date: 20080708
  Receipt Date: 20070711
  Transmission Date: 20090109
  Serious: No
  Sender: FDA-Public Use
  Company Number: US-AMGEN-KDL226190

PATIENT
  Sex: Female

DRUGS (18)
  1. KINERET [Suspect]
     Indication: RHEUMATOID ARTHRITIS
     Route: 058
     Dates: start: 20070501
  2. KINERET [Suspect]
     Indication: DRUG USE FOR UNKNOWN INDICATION
  3. IMURAN [Concomitant]
     Route: 048
     Dates: start: 20000101
  4. ARTHROTEC [Concomitant]
  5. FLEXERIL [Concomitant]
  6. LIDODERM PATCH (ENDO PHARMACEUTICALS) [Concomitant]
  7. MEDROL [Concomitant]
  8. AMBIEN [Concomitant]
  9. MULTI-VITAMINS [Concomitant]
  10. MAGNESIUM [Concomitant]
  11. NEXIUM [Concomitant]
  12. TOPROL-XL [Concomitant]
  13. LAXATIVES [Concomitant]
  14. ALBUTEROL [Concomitant]
  15. SINGULAIR [Concomitant]
  16. CYMBALTA [Concomitant]
  17. UNSPECIFIED INHALER [Concomitant]
  18. LYRICA [Concomitant]

REACTIONS (13)
  - ARTHRALGIA [None]
  - INJECTION SITE ERYTHEMA [None]
  - INJECTION SITE PRURITUS [None]
  - INJECTION SITE RASH [None]
  - INJECTION SITE SWELLING [None]
  - INJECTION SITE VESICLES [None]
  - INJECTION SITE WARMTH [None]
  - LIVER FUNCTION TEST ABNORMAL [None]
  - MOBILITY DECREASED [None]
  - MUSCULOSKELETAL PAIN [None]
  - OEDEMA PERIPHERAL [None]
  - POOR QUALITY SLEEP [None]
  - SKIN EXFOLIATION [None]
